FAERS Safety Report 25355012 (Version 2)
Quarter: 2025Q2

REPORT INFORMATION
  Report Type: Spontaneous
  Country: NL (occurrence: NL)
  Receive Date: 20250524
  Receipt Date: 20250621
  Transmission Date: 20250716
  Serious: Yes (Disabling)
  Sender: ACCORD
  Company Number: None

PATIENT
  Age: 75 Year
  Sex: Male
  Weight: 87 kg

DRUGS (11)
  1. SIMVASTATIN [Suspect]
     Active Substance: SIMVASTATIN
     Indication: Hypercholesterolaemia
     Dosage: STRENGTH: 40 MG, 1 PIECE PER DAY IN THE EVENING
     Dates: start: 20000101
  2. METFORMIN HYDROCHLORIDE [Concomitant]
     Active Substance: METFORMIN HYDROCHLORIDE
  3. TOLBUTAMIDE SODIUM [Concomitant]
     Active Substance: TOLBUTAMIDE SODIUM
  4. INSULIN ASPART [Concomitant]
     Active Substance: INSULIN ASPART
  5. FLECAINIDE [Concomitant]
     Active Substance: FLECAINIDE
  6. METOPROLOL TARTRATE [Concomitant]
     Active Substance: METOPROLOL TARTRATE
  7. APIXABAN [Concomitant]
     Active Substance: APIXABAN
  8. TAMSULOSIN [Concomitant]
     Active Substance: TAMSULOSIN
  9. RAMIPRIL [Concomitant]
     Active Substance: RAMIPRIL
  10. HYDROCHLOROTHIAZIDE [Concomitant]
     Active Substance: HYDROCHLOROTHIAZIDE
  11. NIFEDIPINE [Concomitant]
     Active Substance: NIFEDIPINE

REACTIONS (1)
  - Muscle rupture [Recovering/Resolving]
